FAERS Safety Report 24440577 (Version 1)
Quarter: 2024Q4

REPORT INFORMATION
  Report Type: Spontaneous
  Country: GB (occurrence: GB)
  Receive Date: 20241016
  Receipt Date: 20241016
  Transmission Date: 20250115
  Serious: Yes (Other)
  Sender: TEVA
  Company Number: None

PATIENT
  Sex: Female
  Weight: 11 kg

DRUGS (3)
  1. LANSOPRAZOLE [Suspect]
     Active Substance: LANSOPRAZOLE
     Indication: Infected cyst
     Dosage: AMOXYCILLIN AND CLARITHROMYCIN AND LANSOPRAZOLE
     Route: 065
     Dates: start: 20241001, end: 20241007
  2. CLARITHROMYCIN [Suspect]
     Active Substance: CLARITHROMYCIN
     Indication: Infected cyst
     Dosage: AMOXYCILLIN AND CLARITHROMYCIN AND LANSOPRAZOLE
     Route: 065
     Dates: start: 20241001, end: 20241007
  3. AMOXICILLIN [Suspect]
     Active Substance: AMOXICILLIN
     Indication: Infected skin ulcer
     Dosage: AMOXYCILLIN AND CLARITHROMYCIN AND LANSOPRAZOLE
     Route: 065
     Dates: start: 20241001, end: 20241007

REACTIONS (9)
  - Ocular hyperaemia [Unknown]
  - Skin infection [Unknown]
  - Arthralgia [Unknown]
  - Eye irritation [Unknown]
  - Rash [Not Recovered/Not Resolved]
  - Dermal cyst [Unknown]
  - Pruritus [Unknown]
  - Urticaria [Unknown]
  - Burning sensation [Unknown]

NARRATIVE: CASE EVENT DATE: 20241005
